FAERS Safety Report 10949399 (Version 7)
Quarter: 2015Q4

REPORT INFORMATION
  Report Type: Spontaneous
  Country: BR (occurrence: BR)
  Receive Date: 20150324
  Receipt Date: 20151222
  Transmission Date: 20160304
  Serious: Yes (Death, Hospitalization, Other)
  Sender: FDA-Public Use
  Company Number: BR-PFIZER INC-2014221674

PATIENT
  Age: 71 Year
  Sex: Male
  Weight: 89 kg

DRUGS (5)
  1. PANTOPRAZOLE [Concomitant]
     Active Substance: PANTOPRAZOLE SODIUM
     Dosage: 40 MG, UNK
  2. SUTENT [Suspect]
     Active Substance: SUNITINIB MALATE
     Indication: METASTATIC RENAL CELL CARCINOMA
     Dosage: 50 MG, ONCE PER DAY, CYCLE (4 PER 2) CONTINUOUS
     Route: 048
     Dates: start: 20140706, end: 20150816
  3. ENALAPRIL [Concomitant]
     Active Substance: ENALAPRIL
     Dosage: UNK
     Dates: end: 20150403
  4. AMLODIPINE [Concomitant]
     Active Substance: AMLODIPINE BESYLATE
     Dosage: UNK
  5. HYDRALAZINE [Concomitant]
     Active Substance: HYDRALAZINE HYDROCHLORIDE
     Dosage: UNK

REACTIONS (17)
  - Decreased appetite [Recovered/Resolved]
  - Dry skin [Recovering/Resolving]
  - Urinary tract infection [Unknown]
  - Yellow skin [Not Recovered/Not Resolved]
  - Retching [Recovered/Resolved]
  - Lacrimation increased [Not Recovered/Not Resolved]
  - Disease progression [Fatal]
  - Ageusia [Recovered/Resolved]
  - Hair colour changes [Not Recovered/Not Resolved]
  - Renal failure [Fatal]
  - Obstructive uropathy [Recovered/Resolved]
  - Pathological fracture [Unknown]
  - Purpura [Recovered/Resolved]
  - Sepsis [Unknown]
  - Rash [Recovered/Resolved]
  - Metastatic renal cell carcinoma [Fatal]
  - Eyelid oedema [Recovered/Resolved]

NARRATIVE: CASE EVENT DATE: 2014
